FAERS Safety Report 18636641 (Version 2)
Quarter: 2020Q4

REPORT INFORMATION
  Report Type: Spontaneous
  Country: AU (occurrence: AU)
  Receive Date: 20201218
  Receipt Date: 20201230
  Transmission Date: 20210114
  Serious: Yes (Other)
  Sender: FDA-Public Use
  Company Number: AU-BAUSCH-BL-2020-036005

PATIENT
  Age: 81 Year
  Sex: Female

DRUGS (3)
  1. TOFACITINIB [Concomitant]
     Active Substance: TOFACITINIB
     Indication: PRODUCT USED FOR UNKNOWN INDICATION
  2. XARELTO [Concomitant]
     Active Substance: RIVAROXABAN
     Indication: PRODUCT USED FOR UNKNOWN INDICATION
  3. PREDNISOLONE. [Suspect]
     Active Substance: PREDNISOLONE
     Indication: RHEUMATOID ARTHRITIS
     Route: 048

REACTIONS (4)
  - Joint dislocation [Recovering/Resolving]
  - Peripheral ischaemia [Recovering/Resolving]
  - Subclavian artery perforation [Recovering/Resolving]
  - Toxicity to various agents [Unknown]

NARRATIVE: CASE EVENT DATE: 20200615
